FAERS Safety Report 4968598-2 (Version None)
Quarter: 2006Q2

REPORT INFORMATION
  Report Type: 
  Country: None (occurrence: None)
  Receive Date: 20060405
  Receipt Date: 20060321
  Transmission Date: 20061013
  Serious: Yes (Hospitalization)
  Sender: FDA-Public Use
  Company Number: 2006000675

PATIENT
  Age: 58 Year
  Sex: Male

DRUGS (7)
  1. ERLOTINIB (TABLET) [Suspect]
     Indication: PANCREATIC CARCINOMA METASTATIC
     Dosage: 100 MG (QD), ORAL
     Route: 048
     Dates: start: 20060220, end: 20060312
  2. BEVACIZUMAB/PLACEBO (INJECTION FOR INFUSION) [Suspect]
     Indication: PANCREATIC CARCINOMA METASTATIC
     Dosage: Q2W, INTRAVENOUS
     Route: 042
     Dates: start: 20060220, end: 20060312
  3. GEMCITABINE [Suspect]
     Indication: PANCREATIC CARCINOMA METASTATIC
     Dosage: 1780 MG (QW), INTRAVENOUS
     Route: 042
     Dates: start: 20060220, end: 20060312
  4. IBUPROFEN [Concomitant]
  5. SENNA [Concomitant]
  6. ZOPICLONE [Concomitant]
  7. OXYCODONE [Concomitant]

REACTIONS (2)
  - GASTRIC PERFORATION [None]
  - GASTRIC ULCER [None]
